FAERS Safety Report 7998244-5 (Version None)
Quarter: 2011Q4

REPORT INFORMATION
  Report Type: 
  Country: None (occurrence: None)
  Receive Date: 20111208
  Receipt Date: 20111129
  Transmission Date: 20120403
  Serious: Yes (Other)
  Sender: FDA-Public Use
  Company Number: 2011030375

PATIENT
  Age: 22 Year
  Sex: Female
  Weight: 50.8029 kg

DRUGS (2)
  1. ZEMAIRA [Suspect]
     Indication: ALPHA-1 ANTI-TRYPSIN DEFICIENCY
     Dosage: (60 MG/KG (+/- 10 %) WEEKLY 0.08 ML/KG/MIN INTRAVENOUS (NOT OTHERWISE SPECIFIED))
     Route: 042
     Dates: start: 20111103
  2. PRENATAL VITAMIN + DHA (PRENATAL VITAMINS) [Concomitant]

REACTIONS (3)
  - MATERNAL DRUGS AFFECTING FOETUS [None]
  - HAEMORRHAGE [None]
  - ABORTION SPONTANEOUS [None]
